FAERS Safety Report 20825194 (Version 1)
Quarter: 2022Q2

REPORT INFORMATION
  Report Type: Spontaneous
  Country: JP (occurrence: JP)
  Receive Date: 20220513
  Receipt Date: 20220513
  Transmission Date: 20220721
  Serious: Yes (Hospitalization)
  Sender: FDA-Public Use
  Company Number: JP-SA-2022SA162437

PATIENT
  Age: 81 Year
  Sex: Female

DRUGS (5)
  1. MABCAMPATH [Suspect]
     Active Substance: ALEMTUZUMAB
     Indication: Chronic lymphocytic leukaemia
     Dosage: 30 MG, TIW
     Route: 041
     Dates: start: 20220426, end: 20220502
  2. MABCAMPATH [Suspect]
     Active Substance: ALEMTUZUMAB
     Dosage: 3 MG
     Route: 041
     Dates: start: 20220422
  3. MABCAMPATH [Suspect]
     Active Substance: ALEMTUZUMAB
     Dosage: 10 MG
     Route: 041
     Dates: start: 20220425
  4. MABCAMPATH [Suspect]
     Active Substance: ALEMTUZUMAB
     Dosage: 30 MG, QW
     Route: 041
     Dates: start: 20220506, end: 20220509
  5. MABCAMPATH [Suspect]
     Active Substance: ALEMTUZUMAB
     Dosage: 30 MG, QW
     Route: 041
     Dates: start: 20220511

REACTIONS (1)
  - Platelet count decreased [Not Recovered/Not Resolved]

NARRATIVE: CASE EVENT DATE: 20220502
